FAERS Safety Report 7026877-1 (Version None)
Quarter: 2010Q4

REPORT INFORMATION
  Report Type: 
  Country: None (occurrence: None)
  Receive Date: 20101004
  Receipt Date: 20100929
  Transmission Date: 20110411
  Serious: Yes (Hospitalization)
  Sender: FDA-Public Use
  Company Number: A0836281A

PATIENT
  Age: 69 Year
  Sex: Male
  Weight: 113.6 kg

DRUGS (5)
  1. AVANDIA [Suspect]
     Dosage: 2MG TWICE PER DAY
     Route: 048
     Dates: start: 20021219, end: 20070417
  2. AVANDAMET [Suspect]
     Route: 048
     Dates: start: 20051006, end: 20051130
  3. GLUCOPHAGE [Concomitant]
  4. ZETIA [Concomitant]
  5. LIPITOR [Concomitant]

REACTIONS (5)
  - CORONARY ARTERY DISEASE [None]
  - HYPERCHOLESTEROLAEMIA [None]
  - MYOCARDIAL INFARCTION [None]
  - MYOCARDIAL ISCHAEMIA [None]
  - RESPIRATORY DISORDER [None]
